FAERS Safety Report 4816605-X (Version None)
Quarter: 2005Q4

REPORT INFORMATION
  Report Type: 
  Country: None (occurrence: None)
  Receive Date: 20051028
  Receipt Date: 20051013
  Transmission Date: 20060501
  Serious: Yes (Death)
  Sender: FDA-Public Use
  Company Number: 2005S1010085

PATIENT
  Age: 28 Year
  Sex: Female

DRUGS (5)
  1. CLOZAPINE [Suspect]
     Indication: SCHIZOPHRENIA
     Dosage: 50 MG; QD; ORAL
     Route: 048
     Dates: start: 20050714, end: 20050901
  2. CLOZAPINE [Suspect]
     Dosage: 100 MG; BID; ORAL
     Route: 048
     Dates: start: 20050714, end: 20050901
  3. BUDESONIDE [Concomitant]
  4. VITAMINS NOS [Concomitant]
  5. FERROUS GLUCONATE [Concomitant]

REACTIONS (1)
  - DEATH [None]
